FAERS Safety Report 11499318 (Version 1)
Quarter: 2015Q3

REPORT INFORMATION
  Report Type: Spontaneous
  Country: MY (occurrence: MY)
  Receive Date: 20150913
  Receipt Date: 20150913
  Transmission Date: 20151125
  Serious: Yes (Hospitalization)
  Sender: FDA-Public Use
  Company Number: MY-HOSPIRA-2995573

PATIENT
  Sex: Female

DRUGS (4)
  1. DOPAMINE HYDROCHLORIDE. [Suspect]
     Active Substance: DOPAMINE HYDROCHLORIDE
     Indication: FLUID OVERLOAD
     Dosage: 15 ML/H
     Route: 042
     Dates: end: 20150803
  2. SALINE [Concomitant]
     Active Substance: SODIUM CHLORIDE
     Indication: PRODUCT USED FOR UNKNOWN INDICATION
  3. LEVOPHED [Suspect]
     Active Substance: NOREPINEPHRINE BITARTRATE
     Indication: FLUID OVERLOAD
     Dosage: 15 ML/H
     Route: 042
     Dates: end: 20150803
  4. MEROPENEM. [Concomitant]
     Active Substance: MEROPENEM
     Indication: FLUID OVERLOAD

REACTIONS (2)
  - Poor peripheral circulation [Unknown]
  - Gangrene [Unknown]

NARRATIVE: CASE EVENT DATE: 20150802
